FAERS Safety Report 22200856 (Version 1)
Quarter: 2023Q2

REPORT INFORMATION
  Report Type: Other
  Country: FR (occurrence: FR)
  Receive Date: 20230412
  Receipt Date: 20230412
  Transmission Date: 20230721
  Serious: Yes (Hospitalization, Other)
  Sender: FDA-Public Use
  Company Number: None

PATIENT

DRUGS (3)
  1. BUSULFAN [Suspect]
     Active Substance: BUSULFAN
     Indication: Autologous haematopoietic stem cell transplant
     Dosage: BUSULFAN 3.20 MG/KG, I.E. 265 MG ON D-4 AND D-3; THEN 1.60 MG/KG, I.E. 133MG ON D-2 OF THE AUTOGRAFT
     Route: 042
     Dates: start: 20220101, end: 20220101
  2. BUSULFAN [Suspect]
     Active Substance: BUSULFAN
     Dosage: BUSULFAN 3.20 MG/KG, I.E. 265 MG ON D-4 AND D-3; THEN 1.60 MG/KG, I.E. 133MG ON D-2 OF THE AUTOGRAFT
     Route: 042
     Dates: start: 20211230, end: 20211231
  3. THIOTEPA [Suspect]
     Active Substance: THIOTEPA
     Indication: Autologous haematopoietic stem cell transplant
     Dosage: THIOTEPA 250.00 MG/M?, I.E. 490MG FROM D-7 TO D-5 OF AN AUTOGRAF
     Route: 042
     Dates: start: 20211227, end: 20211229

REACTIONS (1)
  - Pulmonary alveolar haemorrhage [Recovered/Resolved]

NARRATIVE: CASE EVENT DATE: 20220513
